FAERS Safety Report 19885940 (Version 2)
Quarter: 2022Q1

REPORT INFORMATION
  Report Type: Spontaneous
  Country: CZ (occurrence: CZ)
  Receive Date: 20210927
  Receipt Date: 20220321
  Transmission Date: 20220423
  Serious: Yes (Other)
  Sender: FDA-Public Use
  Company Number: CZ-MYLANLABS-2021M1022915

PATIENT
  Age: 48 Year
  Sex: Female

DRUGS (27)
  1. SUMATRIPTAN [Suspect]
     Active Substance: SUMATRIPTAN
     Indication: Migraine
     Dosage: 50 MILLIGRAM, QD, OVER 22 DAYS IN MONTH
     Route: 048
  2. SUMATRIPTAN [Suspect]
     Active Substance: SUMATRIPTAN
     Indication: Migraine prophylaxis
     Dosage: 100 MILLIGRAM DAILY;
     Route: 048
  3. SUMATRIPTAN [Suspect]
     Active Substance: SUMATRIPTAN
     Dosage: 50 MILLIGRAM, QD, OVER 22 DAYS IN MONTH
     Route: 065
  4. TOPIRAMATE [Suspect]
     Active Substance: TOPIRAMATE
     Indication: Migraine
     Dosage: 25 MILLIGRAM, TID
     Route: 048
  5. TOPIRAMATE [Suspect]
     Active Substance: TOPIRAMATE
     Dosage: 75 MILLIGRAM DAILY;
     Route: 048
  6. TOPIRAMATE [Suspect]
     Active Substance: TOPIRAMATE
     Dosage: 100 MILLIGRAM, QD (DAILY)
     Route: 048
  7. TOPIRAMATE [Suspect]
     Active Substance: TOPIRAMATE
     Dosage: 25 MILLIGRAM, QD (AT A TOTAL DAILY DOSE OF 75 MG FOR 2 MONTHS)
     Route: 048
  8. IBUPROFEN [Suspect]
     Active Substance: IBUPROFEN
     Indication: Migraine
     Dosage: 400 MILLIGRAM, BID, 8-10 DAYS IN MONTH
  9. IBUPROFEN [Suspect]
     Active Substance: IBUPROFEN
     Indication: Migraine prophylaxis
     Dosage: 400 MILLIGRAM, BID, 8-10 DAYS IN MONTH
  10. PREGABALIN [Suspect]
     Active Substance: PREGABALIN
     Indication: Migraine
     Dosage: 100 MILLIGRAM DAILY;
     Route: 048
  11. PREGABALIN [Suspect]
     Active Substance: PREGABALIN
     Indication: Migraine without aura
     Dosage: 300 MILLIGRAM DAILY;
     Route: 048
  12. VENLAFAXINE [Suspect]
     Active Substance: VENLAFAXINE HYDROCHLORIDE
     Indication: Migraine
     Dosage: 100 MILLIGRAM DAILY
     Route: 048
  13. VENLAFAXINE [Suspect]
     Active Substance: VENLAFAXINE HYDROCHLORIDE
     Indication: Migraine without aura
     Dosage: 150 MILLIGRAM, QD (DAILY)
     Route: 048
  14. VALPROIC ACID [Suspect]
     Active Substance: VALPROIC ACID
     Indication: Migraine
     Dosage: 800 MILLIGRAM DAILY;
     Route: 048
  15. VALPROIC ACID [Suspect]
     Active Substance: VALPROIC ACID
     Indication: Migraine without aura
     Dosage: 100 MILLIGRAM DAILY;
     Route: 048
  16. AJOVY [Suspect]
     Active Substance: FREMANEZUMAB-VFRM
     Indication: Migraine
     Dosage: 225 MILLIGRAM, 28D CYCLE (8.0357 MILLIGRAM DAILY)
     Route: 058
  17. AJOVY [Suspect]
     Active Substance: FREMANEZUMAB-VFRM
     Indication: Migraine
     Dosage: 100 MILLIGRAM DAILY;
     Route: 048
  18. TOPAMAX [Suspect]
     Active Substance: TOPIRAMATE
     Indication: Migraine without aura
     Dosage: 25 MILLIGRAM, QD (AT A TOTAL DAILY DOSE OF 75 MG FOR 2 MONTHS )
     Route: 048
  19. VALPROATE [Suspect]
     Active Substance: VALPROIC ACID
     Indication: Migraine
     Dosage: 400 MG, BID
  20. VALPROATE [Suspect]
     Active Substance: VALPROIC ACID
     Indication: Migraine without aura
  21. IBUPROFEN [Concomitant]
     Active Substance: IBUPROFEN
     Indication: Migraine
     Dosage: 800 MILLIGRAM, QD (400 MILLIGRAM (2X 1, TAKEN 8 TO 10 DAYS A MONTH))
  22. IBUPROFEN [Concomitant]
     Active Substance: IBUPROFEN
     Indication: Headache
  23. CINNARIZINE [Concomitant]
     Active Substance: CINNARIZINE
     Indication: Rash
     Dosage: 75 MG, QD
  24. CINNARIZINE [Concomitant]
     Active Substance: CINNARIZINE
     Indication: Migraine without aura
     Dosage: 75 MG, QD
  25. PREGABALIN [Concomitant]
     Active Substance: PREGABALIN
     Indication: Migraine
     Dosage: 150 MG, BID
  26. VENLAFAXINE [Concomitant]
     Active Substance: VENLAFAXINE HYDROCHLORIDE
     Indication: Migraine
     Dosage: 150 MILLIGRAM, QD
  27. TOPIRAMATE [Concomitant]
     Active Substance: TOPIRAMATE
     Indication: Migraine
     Dosage: 25 MILLIGRAM

REACTIONS (9)
  - Migraine without aura [Recovered/Resolved]
  - Medication overuse headache [Recovered/Resolved]
  - Fatigue [Recovered/Resolved]
  - Injection site mass [Recovered/Resolved]
  - Drug intolerance [Unknown]
  - Drug ineffective [Unknown]
  - Therapeutic product effect incomplete [Unknown]
  - Product use issue [Unknown]
  - Product use in unapproved indication [Unknown]
